FAERS Safety Report 11796846 (Version 2)
Quarter: 2016Q1

REPORT INFORMATION
  Report Type: Report from Study
  Country: JP (occurrence: JP)
  Receive Date: 20151203
  Receipt Date: 20160128
  Transmission Date: 20160525
  Serious: Yes (Death, Hospitalization)
  Sender: FDA-Public Use
  Company Number: JP-SA-2015SA079701

PATIENT
  Age: 48 Year
  Sex: Male
  Weight: 43.1 kg

DRUGS (12)
  1. THYMOGLOBULINE [Suspect]
     Active Substance: LAPINE T-LYMPHOCYTE IMMUNE GLOBULIN
     Indication: STEM CELL TRANSPLANT
     Dosage: THYMOGLOBULINE AT 50 MG WAS ADMINISTERED OVER 11 HOURS.
     Route: 042
     Dates: start: 20130122, end: 20130122
  2. THYMOGLOBULINE [Suspect]
     Active Substance: LAPINE T-LYMPHOCYTE IMMUNE GLOBULIN
     Indication: STEM CELL TRANSPLANT
     Dosage: THYMOGLOBULINE INJECTION25MG.?INJECTED AS PRETREATMENT OVER 1 HOUR.
     Route: 042
     Dates: start: 20130122, end: 20130122
  3. CHLOR-TRIMETON [Concomitant]
     Active Substance: CHLORPHENIRAMINE MALEATE
     Indication: PROPHYLAXIS
     Dates: start: 20130122, end: 20130122
  4. PARACETAMOL [Concomitant]
     Active Substance: ACETAMINOPHEN
     Indication: PROPHYLAXIS
     Dates: start: 20130122, end: 20130123
  5. FLUDARA [Concomitant]
     Active Substance: FLUDARABINE PHOSPHATE
     Dates: start: 20130123, end: 20130128
  6. BUSULFEX [Concomitant]
     Active Substance: BUSULFAN
     Dates: start: 20130127, end: 20130128
  7. NEORAL [Concomitant]
     Active Substance: CYCLOSPORINE
     Indication: PROPHYLAXIS AGAINST GRAFT VERSUS HOST DISEASE
     Dates: start: 20130216, end: 20130421
  8. ITRIZOLE [Concomitant]
     Active Substance: ITRACONAZOLE
     Indication: PROPHYLAXIS
     Dates: start: 20130113
  9. METHOTREXATE [Concomitant]
     Active Substance: METHOTREXATE
     Indication: PROPHYLAXIS AGAINST GRAFT VERSUS HOST DISEASE
     Dates: start: 20130131, end: 20130205
  10. VICCLOX [Concomitant]
     Active Substance: ACYCLOVIR SODIUM
     Indication: ANTIVIRAL PROPHYLAXIS
     Dates: start: 20130127, end: 20130213
  11. SOL-MELCORT [Concomitant]
     Active Substance: METHYLPREDNISOLONE SODIUM SUCCINATE
     Indication: PROPHYLAXIS
     Dates: start: 20130122, end: 20130128
  12. SANDIMMUN [Concomitant]
     Active Substance: CYCLOSPORINE
     Indication: PROPHYLAXIS AGAINST GRAFT VERSUS HOST DISEASE
     Dates: start: 20130129, end: 20130215

REACTIONS (3)
  - Sepsis [Recovered/Resolved]
  - Graft versus host disease [Recovering/Resolving]
  - Mucous membrane disorder [Recovered/Resolved]

NARRATIVE: CASE EVENT DATE: 20130205
